FAERS Safety Report 8167939-5 (Version None)
Quarter: 2012Q1

REPORT INFORMATION
  Report Type: 
  Country: None (occurrence: None)
  Receive Date: 20120227
  Receipt Date: 20120222
  Transmission Date: 20120608
  Serious: Yes (Death)
  Sender: FDA-Public Use
  Company Number: US-GLAXOSMITHKLINE-A0964598A

PATIENT
  Age: 64 Year
  Sex: Female
  Weight: 77.3 kg

DRUGS (2)
  1. GEMZAR [Concomitant]
     Indication: BREAST CANCER
     Route: 042
     Dates: start: 20111101, end: 20120201
  2. TYKERB [Suspect]
     Indication: BREAST CANCER
     Dosage: 1250MG PER DAY
     Route: 048
     Dates: start: 20111201, end: 20120201

REACTIONS (1)
  - DEATH [None]
